FAERS Safety Report 24607801 (Version 1)
Quarter: 2024Q4

REPORT INFORMATION
  Report Type: Other
  Country: US (occurrence: US)
  Receive Date: 20241112
  Receipt Date: 20241112
  Transmission Date: 20250115
  Serious: No
  Sender: SLATE RUN
  Company Number: US-SLATERUN-2024SRREG00152

PATIENT

DRUGS (1)
  1. GUANFACINE EXTENDED-RELEASE [Suspect]
     Active Substance: GUANFACINE HYDROCHLORIDE
     Indication: Product used for unknown indication
     Route: 065

REACTIONS (4)
  - Therapeutic response changed [Unknown]
  - Product formulation issue [Unknown]
  - Manufacturing materials issue [Unknown]
  - Product substitution issue [Unknown]
